FAERS Safety Report 10461397 (Version 1)
Quarter: 2014Q3

REPORT INFORMATION
  Report Type: Spontaneous
  Country: US (occurrence: None)
  Receive Date: 20140917
  Receipt Date: 20140917
  Transmission Date: 20150326
  Serious: Yes (Hospitalization)
  Sender: FDA-Public Use
  Company Number: None

PATIENT
  Age: 70 Year
  Sex: Male

DRUGS (2)
  1. SULFAMETHOXAZOLE/TRIMETHOPRIM [Suspect]
     Active Substance: SULFAMETHOXAZOLE\TRIMETHOPRIM
     Indication: URINARY TRACT INFECTION
     Route: 048
     Dates: start: 20140702, end: 20140705
  2. FUROSEMIDE. [Suspect]
     Active Substance: FUROSEMIDE
     Route: 042
     Dates: start: 20140708, end: 20140708

REACTIONS (6)
  - Hyperkalaemia [None]
  - Polyuria [None]
  - Renal failure acute [None]
  - Continuous haemodiafiltration [None]
  - Metabolic acidosis [None]
  - Hypovolaemia [None]

NARRATIVE: CASE EVENT DATE: 20140706
